FAERS Safety Report 17581297 (Version 1)
Quarter: 2020Q1

REPORT INFORMATION
  Report Type: Spontaneous
  Country: US (occurrence: US)
  Receive Date: 20200325
  Receipt Date: 20200325
  Transmission Date: 20200409
  Serious: Yes (Other)
  Sender: FDA-Public Use
  Company Number: None

PATIENT
  Age: 17 Year
  Sex: Female
  Weight: 42.2 kg

DRUGS (3)
  1. OCELLA [Suspect]
     Active Substance: DROSPIRENONE\ETHINYL ESTRADIOL
     Indication: MENORRHAGIA
  2. DROSPIRENONE AND ETHINYL ESTRADIOL [Suspect]
     Active Substance: DROSPIRENONE\ETHINYL ESTRADIOL
     Indication: MENSTRUAL DISORDER
  3. OCELLA [Suspect]
     Active Substance: DROSPIRENONE\ETHINYL ESTRADIOL
     Indication: HIRSUTISM

REACTIONS (6)
  - Headache [None]
  - Menorrhagia [None]
  - Acne [None]
  - Product substitution issue [None]
  - Hirsutism [None]
  - Vaginal haemorrhage [None]

NARRATIVE: CASE EVENT DATE: 20200325
